FAERS Safety Report 5712771-2 (Version None)
Quarter: 2008Q2

REPORT INFORMATION
  Report Type: 
  Country: None (occurrence: None)
  Receive Date: 20080418
  Receipt Date: 20080401
  Transmission Date: 20081010
  Serious: Yes (Hospitalization, Other)
  Sender: FDA-Public Use
  Company Number: DSA_31674_2008

PATIENT
  Age: 8 Year

DRUGS (7)
  1. ENALAPRIL MALEATE [Suspect]
     Indication: HYPERTENSION
     Dosage: (5 MG BID ORAL), (2.5 MG BID ORAL)
     Route: 048
     Dates: end: 20080301
  2. ENALAPRIL MALEATE [Suspect]
     Indication: HYPERTENSION
     Dosage: (5 MG BID ORAL), (2.5 MG BID ORAL)
     Route: 048
     Dates: start: 20080315, end: 20080316
  3. CYCLOSPORINE [Suspect]
     Indication: NEPHROTIC SYNDROME
     Dosage: (60 MG BID ORAL)
     Route: 048
     Dates: start: 20020315, end: 20080316
  4. AMLODIPINE BESYLATE [Concomitant]
  5. MYCOPHENOLATE MOFETIL [Concomitant]
  6. OMEPRAZOLE [Concomitant]
  7. PREDNISOLONE [Concomitant]

REACTIONS (3)
  - DRUG INTERACTION [None]
  - NEPHROTIC SYNDROME [None]
  - RENAL IMPAIRMENT [None]
